FAERS Safety Report 10546080 (Version 1)
Quarter: 2014Q4

REPORT INFORMATION
  Report Type: Spontaneous
  Country: KR (occurrence: KP)
  Receive Date: 20141027
  Receipt Date: 20141027
  Transmission Date: 20150529
  Serious: Yes (Death, Hospitalization)
  Sender: FDA-Public Use
  Company Number: KR-OTSUKA-US-2014-13245

PATIENT

DRUGS (28)
  1. RABEPRAZOLE SODIUM. [Concomitant]
     Active Substance: RABEPRAZOLE SODIUM
     Indication: GASTRIC ULCER
     Dosage: RABEKHAN, UNK
     Route: 048
     Dates: start: 20140521
  2. SULFOSE [Concomitant]
     Active Substance: SULFAMERAZINE
     Indication: BRONCHITIS
     Dosage: 200 MG MILLIGRAM(S), UNKNOWN
     Route: 048
     Dates: start: 20140521, end: 20140528
  3. FLASINYL [Concomitant]
     Indication: ANTIBIOTIC THERAPY
     Dosage: 500 MG MILLIGRAM(S), TID
     Route: 048
     Dates: start: 20140723, end: 20140802
  4. DACOGEN [Suspect]
     Active Substance: DECITABINE
     Dosage: 17 MG/M2, UNKNOWN
     Route: 042
     Dates: start: 20140705, end: 20140709
  5. AMBROXOL [Concomitant]
     Active Substance: AMBROXOL
     Indication: ANTITUSSIVE THERAPY
     Dosage: 15 MG MILLIGRAM(S), TID
     Route: 042
     Dates: start: 20140723, end: 20140802
  6. GANATON [Concomitant]
     Active Substance: ITOPRIDE
     Indication: DYSPEPSIA
     Dosage: 50 MG MILLIGRAM(S), UNKNOWN
     Route: 048
     Dates: start: 20140421, end: 20140528
  7. MAGMIL [Concomitant]
     Active Substance: MAGNESIUM HYDROXIDE
     Indication: ANTACID THERAPY
     Dosage: 4 DOSES UNKNOWN, UNKNOWN
     Route: 048
     Dates: start: 20140522, end: 20140528
  8. DACOGEN [Suspect]
     Active Substance: DECITABINE
     Indication: ACUTE MYELOID LEUKAEMIA
     Dosage: 17 MG/M2, UNKNOWN
     Route: 042
     Dates: start: 20140520, end: 20140524
  9. XANAX [Concomitant]
     Active Substance: ALPRAZOLAM
     Indication: SEDATIVE THERAPY
     Dosage: 0.25 MG MILLIGRAM(S), UNKNOWN
     Route: 048
     Dates: start: 20140520, end: 20140528
  10. NORVASC [Concomitant]
     Active Substance: AMLODIPINE BESYLATE
     Indication: HYPERTENSION
     Dosage: 5 MG MILLIGRAM(S), UNKNOWN
     Route: 048
     Dates: start: 20140421
  11. MUTERAN [Concomitant]
     Indication: ANTITUSSIVE THERAPY
     Dosage: 100 MG MILLIGRAM(S), UNKNOWN
     Route: 042
     Dates: start: 20140607, end: 20140622
  12. HYDROXYCARBAMIDE [Concomitant]
     Active Substance: HYDROXYUREA
     Indication: PRODUCT USED FOR UNKNOWN INDICATION
     Dosage: 500 MG MILLIGRAM(S), UNKNOWN
     Dates: start: 20140529, end: 20140604
  13. VANCOCIN [Concomitant]
     Active Substance: VANCOMYCIN HYDROCHLORIDE
     Indication: ANTIBIOTIC THERAPY
     Dosage: 250 MG MILLIGRAM(S), QID
     Route: 048
     Dates: start: 20140723, end: 20140802
  14. ALLEGRA-D [Concomitant]
     Active Substance: FEXOFENADINE\PSEUDOEPHEDRINE
     Indication: ANTIALLERGIC THERAPY
     Dosage: 1 DOSE UNKNOWN, UNKNOWN
     Route: 048
     Dates: start: 20140521, end: 20140528
  15. DISOLAN [Concomitant]
     Indication: BLOOD CORTICOTROPHIN
     Dosage: 30 MG MILLIGRAM(S), UNKNOWN
     Route: 042
     Dates: start: 20140723, end: 20140802
  16. DIPHENOXYLATE HYDROCHLORIDE [Concomitant]
     Active Substance: DIPHENOXYLATE HYDROCHLORIDE
     Indication: ANTITUSSIVE THERAPY
     Dosage: 300 MG MILLIGRAM(S), UNKNOWN
     Route: 048
     Dates: start: 20140521, end: 20140615
  17. FACTIVE [Concomitant]
     Active Substance: GEMIFLOXACIN MESYLATE
     Indication: ANTIBIOTIC THERAPY
     Dosage: 320 MG MILLIGRAM(S), UNKNOWN
     Route: 048
     Dates: start: 20140529, end: 20140630
  18. ULCERMIN [Concomitant]
     Active Substance: SUCRALFATE
     Indication: PEPTIC ULCER
     Dosage: 1 PACK (3 BFREQUENCY)
     Route: 048
     Dates: start: 20140721, end: 20140802
  19. HERBAL NOS [Concomitant]
     Active Substance: HERBALS
     Indication: ANTACID THERAPY
     Dosage: 60 MG MILLIGRAM(S), UNKNOWN
     Route: 048
     Dates: start: 20140421, end: 20140630
  20. RIZE [Concomitant]
     Active Substance: CLOTIAZEPAM
     Indication: SEDATIVE THERAPY
     Dosage: 5 MG MILLIGRAM(S), UNKNOWN
     Route: 048
     Dates: start: 20140529, end: 20140604
  21. DIPHENOXYLATE HYDROCHLORIDE [Concomitant]
     Active Substance: DIPHENOXYLATE HYDROCHLORIDE
     Indication: PRODUCTIVE COUGH
  22. DACOGEN [Suspect]
     Active Substance: DECITABINE
     Dosage: 17 MG/M2, UNKNOWN
     Route: 042
     Dates: start: 20140609, end: 20140613
  23. DENOGAN [Concomitant]
     Indication: PYREXIA
     Dosage: 2 G GRAM(S), UNKNOWN
     Route: 042
     Dates: start: 20140607, end: 20140610
  24. DUPHALAC [Concomitant]
     Active Substance: LACTULOSE
     Indication: LAXATIVE SUPPORTIVE CARE
     Dosage: 1 DOSE, UNKNOWN, UNKNOWN
     Route: 048
     Dates: start: 20140522, end: 20140604
  25. MUTERAN [Concomitant]
     Indication: PRODUCTIVE COUGH
  26. ASPIRIN PROTECT [Concomitant]
     Active Substance: ASPIRIN
     Indication: ANTIPLATELET THERAPY
     Dosage: 100 MG MILLIGRAM(S), UNKNOWN
     Route: 048
     Dates: start: 20140421, end: 20140621
  27. MEROPEN [Concomitant]
     Active Substance: MEROPENEM
     Indication: ANTIBIOTIC THERAPY
     Dosage: 500 MG MILLIGRAM(S), UNKNOWN
     Route: 042
     Dates: start: 20140608, end: 20140624
  28. PANTOLOC [Concomitant]
     Active Substance: PANTOPRAZOLE SODIUM
     Indication: PEPTIC ULCER
     Dosage: 20 MG MILLIGRAM(S), UNKNOWN
     Route: 048
     Dates: start: 20140723, end: 20140802

REACTIONS (2)
  - Colitis [Fatal]
  - Pneumonia [Recovered/Resolved]

NARRATIVE: CASE EVENT DATE: 20140606
